FAERS Safety Report 4414013-7 (Version None)
Quarter: 2004Q3

REPORT INFORMATION
  Report Type: 
  Country: None (occurrence: None)
  Receive Date: 20040728
  Receipt Date: 20040601
  Transmission Date: 20050211
  Serious: Yes (Other)
  Sender: FDA-Public Use
  Company Number: JP-JNJFOC-20040300385

PATIENT
  Age: 51 Year
  Sex: Male

DRUGS (14)
  1. REMICADE [Suspect]
     Indication: RHEUMATOID ARTHRITIS
     Dosage: 162 MG, INTRAVENOUS
     Route: 042
     Dates: start: 20031014
  2. ALPROSTADIL [Concomitant]
  3. FAMOTIDINE [Concomitant]
  4. LOXOPROFEN SODIUM [Concomitant]
  5. MAGNESIUM OXIDE [Concomitant]
  6. MECOBALAMIN [Concomitant]
  7. METHOTREXATE [Concomitant]
  8. MIZORIBINE [Concomitant]
  9. PREDNISOLONE [Concomitant]
  10. SALAZOSULFAPYRIDINE (SULFASALAZINE) [Concomitant]
  11. SARPOGRELATE HYDROCHLORIDE [Concomitant]
  12. WARFARIN POTASSIUM [Concomitant]
  13. LAC 8 (LACTOSE) [Concomitant]
  14. ISONTONIC SODIUM CHLORIDE SOLUTION  (ISOTONIC SOLUTIONS) [Concomitant]

REACTIONS (1)
  - LEG AMPUTATION [None]
